FAERS Safety Report 10101885 (Version 1)
Quarter: 2014Q2

REPORT INFORMATION
  Report Type: Spontaneous
  Country: US (occurrence: US)
  Receive Date: 20140424
  Receipt Date: 20140424
  Transmission Date: 20141212
  Serious: Yes (Hospitalization)
  Sender: FDA-Public Use
  Company Number: PHEH2014US007877

PATIENT
  Sex: Female

DRUGS (4)
  1. AFINITOR [Suspect]
     Indication: NEOPLASM MALIGNANT
     Dosage: 2.5 MG, QD
     Dates: start: 20140326, end: 20140417
  2. CELEBREX [Concomitant]
  3. VITAMIN B12 [Concomitant]
  4. CENTRUM [Concomitant]
     Dosage: UNK

REACTIONS (12)
  - Ear pain [Unknown]
  - Odynophagia [Unknown]
  - Aphagia [Unknown]
  - Burn of internal organs [Unknown]
  - Aphonia [Unknown]
  - Dyspepsia [Unknown]
  - Tongue haemorrhage [Unknown]
  - Oral pain [Unknown]
  - Stomatitis [Unknown]
  - Glossodynia [Unknown]
  - Oropharyngeal pain [Unknown]
  - Lip haemorrhage [Unknown]
